FAERS Safety Report 9004396 (Version 1)
Quarter: 2013Q1

REPORT INFORMATION
  Report Type: Spontaneous
  Country: US (occurrence: None)
  Receive Date: 20130104
  Receipt Date: 20130104
  Transmission Date: 20140127
  Serious: No
  Sender: FDA-Public Use
  Company Number: None

PATIENT
  Sex: Female
  Weight: 64.86 kg

DRUGS (1)
  1. LATUDA [Suspect]
     Indication: PSYCHOTIC DISORDER
     Dosage: ONE TAB  EACH NIGHT  BY MOUTH  ?OVER 2WKS
     Route: 048

REACTIONS (2)
  - Local swelling [None]
  - Activities of daily living impaired [None]
